FAERS Safety Report 5626760-X (Version None)
Quarter: 2008Q1

REPORT INFORMATION
  Report Type: 
  Country: None (occurrence: None)
  Receive Date: 20080214
  Receipt Date: 20080202
  Transmission Date: 20080703
  Serious: Yes (Other)
  Sender: FDA-Public Use
  Company Number: US-PFIZER INC-2008011213

PATIENT
  Sex: Male
  Weight: 75 kg

DRUGS (7)
  1. CHANTIX [Suspect]
     Indication: SMOKING CESSATION THERAPY
  2. METFORMIN HCL [Concomitant]
  3. LISINOPRIL [Concomitant]
  4. NEURONTIN [Concomitant]
  5. HALDOL [Concomitant]
  6. ACETYLSALICYLIC ACID SRT [Concomitant]
  7. COGENTIN [Concomitant]

REACTIONS (7)
  - AGITATION [None]
  - DEPRESSION [None]
  - INSOMNIA [None]
  - NAUSEA [None]
  - NERVOUSNESS [None]
  - SUICIDAL IDEATION [None]
  - VOMITING [None]
